FAERS Safety Report 6144203-7 (Version None)
Quarter: 2009Q2

REPORT INFORMATION
  Report Type: 
  Country: None (occurrence: None)
  Receive Date: 20090406
  Receipt Date: 20090327
  Transmission Date: 20091009
  Serious: Yes (Congenital Anomaly)
  Sender: FDA-Public Use
  Company Number: PHHY2009DK11852

PATIENT

DRUGS (1)
  1. OXCARBAZEPINE [Suspect]
     Dosage: MATERNAL DOSE 1650 MG/DAY
     Route: 064

REACTIONS (2)
  - ATRIAL SEPTAL DEFECT [None]
  - DRUG EXPOSURE DURING PREGNANCY [None]
